FAERS Safety Report 16982116 (Version 1)
Quarter: 2019Q4

REPORT INFORMATION
  Report Type: Report from Study
  Country: JP (occurrence: JP)
  Receive Date: 20191101
  Receipt Date: 20191101
  Transmission Date: 20200122
  Serious: Yes (Other)
  Sender: FDA-Public Use
  Company Number: JP-ROCHE-2386460

PATIENT
  Age: 32 Year
  Sex: Female
  Weight: 52 kg

DRUGS (26)
  1. TACROLIMUS. [Concomitant]
     Active Substance: TACROLIMUS
     Dosage: BLOOD TROUGH CONCENTRATION: 1.5-22.4 NG/ML FROM?ORAL, INHIBITION OF ANTIBODY-MEDIATED REJECTION IN A
     Route: 048
     Dates: start: 20190123
  2. MYCOPHENOLATE MOFETIL. [Concomitant]
     Active Substance: MYCOPHENOLATE MOFETIL
     Dosage: ORAL, INHIBITION OF ANTIBODYMEDIATED REJECTION IN ABO-INCOMPATIBLE LIVER TRANSPLANTATION
     Route: 048
     Dates: start: 20190124
  3. SOL-MELCORT [Concomitant]
     Active Substance: METHYLPREDNISOLONE SODIUM SUCCINATE
     Route: 042
     Dates: start: 20190127, end: 20190128
  4. ZINC. [Concomitant]
     Active Substance: ZINC
     Indication: HEPATO-LENTICULAR DEGENERATION
     Route: 048
     Dates: start: 20190327
  5. BAYASPIRIN [Concomitant]
     Active Substance: ASPIRIN
     Dosage: NEUROLOGICAL SYMPTOM
     Route: 048
     Dates: start: 20190329
  6. DAIPHEN [Concomitant]
     Active Substance: SULFAMETHOXAZOLE\TRIMETHOPRIM
     Dosage: INFECTION PROPHYLAXIS
     Route: 048
     Dates: start: 20190405
  7. RITUXIMAB. [Suspect]
     Active Substance: RITUXIMAB
     Indication: LIVER TRANSPLANT
     Route: 041
     Dates: start: 20190108, end: 20190108
  8. METHYLPREDNISOLONE SODIUM SUCCINATE. [Concomitant]
     Active Substance: METHYLPREDNISOLONE SODIUM SUCCINATE
     Route: 042
     Dates: end: 20190228
  9. SOL-MELCORT [Concomitant]
     Active Substance: METHYLPREDNISOLONE SODIUM SUCCINATE
     Route: 042
     Dates: start: 20190129, end: 20190129
  10. MEDROL [Concomitant]
     Active Substance: METHYLPREDNISOLONE
     Route: 048
     Dates: start: 20190618, end: 20190715
  11. TACROLIMUS. [Concomitant]
     Active Substance: TACROLIMUS
     Route: 048
     Dates: start: 20190207
  12. SOL-MELCORT [Concomitant]
     Active Substance: METHYLPREDNISOLONE SODIUM SUCCINATE
     Route: 042
     Dates: start: 20190124, end: 20190124
  13. SOL-MELCORT [Concomitant]
     Active Substance: METHYLPREDNISOLONE SODIUM SUCCINATE
     Route: 042
     Dates: start: 20190126, end: 20190126
  14. SOL-MELCORT [Concomitant]
     Active Substance: METHYLPREDNISOLONE SODIUM SUCCINATE
     Route: 042
     Dates: start: 20190221, end: 20190228
  15. SOL-MELCORT [Concomitant]
     Active Substance: METHYLPREDNISOLONE SODIUM SUCCINATE
     Route: 042
     Dates: start: 20190123, end: 20190123
  16. SOL-MELCORT [Concomitant]
     Active Substance: METHYLPREDNISOLONE SODIUM SUCCINATE
     Route: 042
     Dates: start: 20190201, end: 20190203
  17. WARFARIN [Concomitant]
     Active Substance: WARFARIN
     Dosage: NEUROLOGICAL SYMPTOM
     Route: 048
     Dates: start: 20190329
  18. SOL-MELCORT [Concomitant]
     Active Substance: METHYLPREDNISOLONE SODIUM SUCCINATE
     Route: 042
     Dates: start: 20190122, end: 20190122
  19. ACELIO [Concomitant]
     Active Substance: ACETAMINOPHEN
     Indication: PREMEDICATION
     Route: 042
  20. DEXCHLORPHENIRAMINE MALEATE. [Concomitant]
     Active Substance: DEXCHLORPHENIRAMINE MALEATE
     Route: 042
  21. SOL-MELCORT [Concomitant]
     Active Substance: METHYLPREDNISOLONE SODIUM SUCCINATE
     Route: 042
     Dates: start: 20190204, end: 20190220
  22. MEDROL [Concomitant]
     Active Substance: METHYLPREDNISOLONE
     Route: 048
     Dates: start: 20190716
  23. PENICILLAMINE [Concomitant]
     Active Substance: PENICILLAMINE
     Indication: HEPATO-LENTICULAR DEGENERATION
     Route: 048
     Dates: start: 2019, end: 20190214
  24. SOL-MELCORT [Concomitant]
     Active Substance: METHYLPREDNISOLONE SODIUM SUCCINATE
     Route: 042
     Dates: start: 20190125, end: 20190125
  25. SOL-MELCORT [Concomitant]
     Active Substance: METHYLPREDNISOLONE SODIUM SUCCINATE
     Route: 042
     Dates: start: 20190130, end: 20190131
  26. MEDROL [Concomitant]
     Active Substance: METHYLPREDNISOLONE
     Dosage: INHIBITION OF ANTIBODY-MEDIATED REJECTION IN ABO-INCOMPATIBLE LIVER TRANSPLANTATION
     Route: 048
     Dates: start: 20190301, end: 20190617

REACTIONS (2)
  - Device related infection [Recovered/Resolved]
  - Hepatic vein stenosis [Recovered/Resolved]

NARRATIVE: CASE EVENT DATE: 20190129
